FAERS Safety Report 14673345 (Version 1)
Quarter: 2018Q1

REPORT INFORMATION
  Report Type: Spontaneous
  Country: US (occurrence: US)
  Receive Date: 20180322
  Receipt Date: 20180322
  Transmission Date: 20180509
  Serious: No
  Sender: FDA-Public Use
  Company Number: None

PATIENT
  Age: 3 Year
  Sex: Female
  Weight: 15.75 kg

DRUGS (1)
  1. SUCRAID [Suspect]
     Active Substance: SACROSIDASE
     Indication: SUCRASE-ISOMALTASE DEFICIENCY
     Dosage: ?          OTHER STRENGTH:UNIT;QUANTITY:2 ML;OTHER FREQUENCY:UP TO 6X DAILY;?
     Route: 048
     Dates: start: 20180321, end: 20180321

REACTIONS (2)
  - Vomiting [None]
  - Abdominal pain [None]

NARRATIVE: CASE EVENT DATE: 20180321
